FAERS Safety Report 14289846 (Version 1)
Quarter: 2017Q4

REPORT INFORMATION
  Report Type: Spontaneous
  Country: US (occurrence: US)
  Receive Date: 20171215
  Receipt Date: 20171215
  Transmission Date: 20180321
  Serious: Yes (Hospitalization)
  Sender: FDA-Public Use
  Company Number: None

PATIENT
  Sex: Female

DRUGS (7)
  1. CYANOCABALAM [Concomitant]
  2. CYCLOBENZAPR [Concomitant]
     Active Substance: CYCLOBENZAPRINE
  3. DOXYCYC MONO [Concomitant]
     Active Substance: DOXYCYCLINE
  4. MYCOPHENOLATE [Suspect]
     Active Substance: MYCOPHENOLIC ACID
     Indication: ORGAN TRANSPLANT
     Route: 048
     Dates: start: 20151119
  5. CLINDAMYCIN. [Concomitant]
     Active Substance: CLINDAMYCIN
  6. GABAPENTIN. [Concomitant]
     Active Substance: GABAPENTIN
  7. DULOXETINE. [Concomitant]
     Active Substance: DULOXETINE

REACTIONS (1)
  - Hospitalisation [None]
